FAERS Safety Report 17132060 (Version 1)
Quarter: 2019Q4

REPORT INFORMATION
  Report Type: Spontaneous
  Country: US (occurrence: US)
  Receive Date: 20191210
  Receipt Date: 20191210
  Transmission Date: 20200122
  Serious: Yes (Disabling)
  Sender: FDA-Public Use
  Company Number: US-MALLINCKRODT-T201907815

PATIENT
  Sex: Male
  Weight: 141 kg

DRUGS (2)
  1. ABILIFY [Concomitant]
     Active Substance: ARIPIPRAZOLE
     Indication: PRODUCT USED FOR UNKNOWN INDICATION
     Dosage: UNK
     Route: 065
  2. METHYLPHENIDATE HYDROCHLORIDE EXTENDED RELEASE TABLETS [Suspect]
     Active Substance: METHYLPHENIDATE HYDROCHLORIDE
     Indication: ATTENTION DEFICIT/HYPERACTIVITY DISORDER
     Dosage: 54 MILLIGRAM, QD
     Route: 048
     Dates: start: 201710, end: 201911

REACTIONS (5)
  - Loss of personal independence in daily activities [Not Recovered/Not Resolved]
  - Muscular weakness [Not Recovered/Not Resolved]
  - Myositis [Not Recovered/Not Resolved]
  - Arthritis [Not Recovered/Not Resolved]
  - Therapeutic product effect decreased [Not Recovered/Not Resolved]

NARRATIVE: CASE EVENT DATE: 2017
